FAERS Safety Report 8290424-7 (Version None)
Quarter: 2012Q2

REPORT INFORMATION
  Report Type: 
  Country: None (occurrence: None)
  Receive Date: 20120413
  Receipt Date: 20120413
  Transmission Date: 20120825
  Serious: Yes (Hospitalization)
  Sender: FDA-Public Use
  Company Number: None

PATIENT
  Age: 49 Year
  Sex: Female
  Weight: 124 kg

DRUGS (13)
  1. ASPIRIN [Concomitant]
  2. COMPAZINE [Concomitant]
  3. NEULASTA [Concomitant]
  4. VERAPAMIL [Concomitant]
  5. TRIAMTERENE AND HYDROCHLOROTHIAZIDE [Concomitant]
  6. DOCETAXEL [Suspect]
     Indication: BREAST CANCER IN SITU
     Dosage: 75MG/M2 EVERY 2 WEEKS IV
     Route: 042
     Dates: start: 20120216, end: 20120316
  7. ZOFRAN [Concomitant]
  8. LISINOPRIL [Concomitant]
  9. RISPERIDONE [Concomitant]
  10. DEXAMETHASONE [Concomitant]
  11. CYCLOPHOSPHAMIDE [Suspect]
     Indication: BREAST CANCER IN SITU
     Dosage: 600 MG/M2 EVERY 2 WEEKS IV
     Route: 042
     Dates: start: 20120216, end: 20120316
  12. FLUOXETINE [Concomitant]
  13. LEVOTHYROXINE SODIUM [Concomitant]

REACTIONS (4)
  - LARGE INTESTINE PERFORATION [None]
  - DIVERTICULITIS [None]
  - FLATULENCE [None]
  - ABDOMINAL PAIN [None]
